FAERS Safety Report 7375020-8 (Version None)
Quarter: 2011Q1

REPORT INFORMATION
  Report Type: 
  Country: None (occurrence: None)
  Receive Date: 20110325
  Receipt Date: 20110317
  Transmission Date: 20110831
  Serious: Yes (Other)
  Sender: FDA-Public Use
  Company Number: ZA-SANOFI-AVENTIS-2010SA044857

PATIENT
  Age: 74 Year
  Sex: Female

DRUGS (6)
  1. ROSUVASTATIN CALCIUM [Concomitant]
  2. PERINDOPRIL [Concomitant]
  3. LEVOTHYROXINE SODIUM [Concomitant]
  4. ZOPIMED [Concomitant]
  5. KETEK [Suspect]
     Indication: PNEUMONIA
     Route: 048
     Dates: start: 20100714, end: 20100721
  6. LOSARTAN POTASSIUM [Concomitant]

REACTIONS (5)
  - DEHYDRATION [None]
  - FATIGUE [None]
  - VOMITING [None]
  - NAUSEA [None]
  - HEPATIC ENZYME INCREASED [None]
